FAERS Safety Report 19510820 (Version 1)
Quarter: 2021Q3

REPORT INFORMATION
  Report Type: Spontaneous
  Country: IT (occurrence: IT)
  Receive Date: 20210709
  Receipt Date: 20210709
  Transmission Date: 20211014
  Serious: Yes (Other)
  Sender: FDA-Public Use
  Company Number: IT-AMGEN-ITASP2021103750

PATIENT
  Age: 71 Year
  Sex: Male

DRUGS (3)
  1. MVASI [Suspect]
     Active Substance: BEVACIZUMAB-AWWB
     Indication: ADENOCARCINOMA OF COLON
     Dosage: 400 MILLIGRAM
     Route: 042
     Dates: start: 20210301, end: 20210603
  2. FLUOROURACIL. [Suspect]
     Active Substance: FLUOROURACIL
     Dosage: 2800 MILLIGRAM, CYCLICAL
     Route: 040
     Dates: start: 20210301, end: 20210603
  3. FLUOROURACIL. [Suspect]
     Active Substance: FLUOROURACIL
     Indication: ADENOCARCINOMA OF COLON
     Dosage: 450 MILLIGRAM, CYCLICAL
     Route: 040
     Dates: start: 20210301, end: 20210603

REACTIONS (1)
  - Thrombocytopenia [Recovering/Resolving]

NARRATIVE: CASE EVENT DATE: 20210603
